FAERS Safety Report 9274711 (Version 1)
Quarter: 2013Q2

REPORT INFORMATION
  Report Type: Spontaneous
  Country: US (occurrence: None)
  Receive Date: 20130429
  Receipt Date: 20130429
  Transmission Date: 20140414
  Serious: Yes (Hospitalization, Other)
  Sender: FDA-Public Use
  Company Number: AUR-APL-2013-03314

PATIENT
  Age: 46 Year
  Sex: Male

DRUGS (4)
  1. SERTRALINE [Suspect]
     Indication: DEPRESSION
     Dosage: (100 MG,1 D)
  2. NYQUIL [Suspect]
     Indication: NASAL CONGESTION
  3. METFORMIN (METFORMIN) [Concomitant]
  4. LEVOTHYROXINE (LEVOTHYROXINE) [Concomitant]

REACTIONS (22)
  - Cough [None]
  - Insomnia [None]
  - Confusional state [None]
  - Chills [None]
  - Agitation [None]
  - Hyperhidrosis [None]
  - Stupor [None]
  - Hyperreflexia [None]
  - Diarrhoea [None]
  - Tachycardia [None]
  - Blood pressure systolic increased [None]
  - Tachypnoea [None]
  - Mydriasis [None]
  - Gastrointestinal sounds abnormal [None]
  - Tremor [None]
  - Muscle rigidity [None]
  - Metabolic acidosis [None]
  - Blood urea increased [None]
  - Blood creatinine increased [None]
  - Serotonin syndrome [None]
  - Hyperthermia [None]
  - Drug interaction [None]
